FAERS Safety Report 10225729 (Version 2)
Quarter: 2014Q2

REPORT INFORMATION
  Report Type: Spontaneous
  Country: US (occurrence: US)
  Receive Date: 20140609
  Receipt Date: 20140609
  Transmission Date: 20141212
  Serious: Yes (Hospitalization)
  Sender: FDA-Public Use
  Company Number: US-ASTELLAS-2013US007706

PATIENT
  Age: 34 Year
  Sex: Female
  Weight: 61 kg

DRUGS (1)
  1. PROGRAF [Suspect]
     Indication: PANCREAS TRANSPLANT
     Dosage: 5 MG, 3 MG IN AM, 2 MG IN PM
     Route: 048
     Dates: start: 20120706

REACTIONS (3)
  - Off label use [Unknown]
  - Incision site infection [Recovered/Resolved]
  - Urinary tract infection [Recovered/Resolved]
